FAERS Safety Report 15819474 (Version 1)
Quarter: 2019Q1

REPORT INFORMATION
  Report Type: Report from Study
  Country: TW (occurrence: TW)
  Receive Date: 20190114
  Receipt Date: 20190114
  Transmission Date: 20190417
  Serious: Yes (Hospitalization)
  Sender: FDA-Public Use
  Company Number: TW-EMD SERONO-9060210

PATIENT
  Age: 47 Year
  Sex: Female

DRUGS (1)
  1. REBIF [Suspect]
     Active Substance: INTERFERON BETA-1A
     Indication: MULTIPLE SCLEROSIS
     Route: 058
     Dates: start: 20120321

REACTIONS (3)
  - Optic neuritis [Recovering/Resolving]
  - Gait disturbance [Recovering/Resolving]
  - Central nervous system inflammation [Recovering/Resolving]

NARRATIVE: CASE EVENT DATE: 201812
